FAERS Safety Report 25518625 (Version 2)
Quarter: 2025Q3

REPORT INFORMATION
  Report Type: Report from Study
  Country: KR (occurrence: KR)
  Receive Date: 20250704
  Receipt Date: 20250731
  Transmission Date: 20251021
  Serious: Yes (Other)
  Sender: TAKEDA
  Company Number: KR-TAKEDA-2025TUS059622

PATIENT
  Age: 54 Year
  Sex: Female
  Weight: 53.6 kg

DRUGS (11)
  1. VEDOLIZUMAB [Suspect]
     Active Substance: VEDOLIZUMAB
     Indication: Colitis ulcerative
     Dates: start: 20241007, end: 20250113
  2. VEDOLIZUMAB [Suspect]
     Active Substance: VEDOLIZUMAB
  3. ASACOL [Concomitant]
     Active Substance: MESALAMINE
     Dosage: 1600 MILLIGRAM, BID
     Dates: start: 20231106
  4. Solondo [Concomitant]
     Dosage: 10 MILLIGRAM, QD
     Dates: start: 20241007, end: 20241020
  5. Solondo [Concomitant]
     Dosage: 5 MILLIGRAM, QD
     Dates: start: 20241021, end: 20241103
  6. ASACOL [Concomitant]
     Active Substance: MESALAMINE
     Dosage: 500 MILLIGRAM, QD
     Dates: start: 20241119
  7. ZOLPIDEM TARTRATE [Concomitant]
     Active Substance: ZOLPIDEM TARTRATE
     Indication: Insomnia
     Dosage: 12.5 MILLIGRAM, QD
     Dates: start: 20240826, end: 20241104
  8. Esomezol [Concomitant]
     Indication: Gastritis
     Dosage: 40 MILLIGRAM, QD
     Dates: start: 20240812, end: 20241104
  9. Megatrue gold [Concomitant]
     Indication: Hypovitaminosis
     Dosage: 25 MILLIGRAM, QD
     Dates: start: 20231120
  10. Peniramin [Concomitant]
     Indication: Rash
     Dates: start: 20250310, end: 20250310
  11. Peniramin [Concomitant]
     Indication: Urticaria

REACTIONS (1)
  - Haematochezia [Not Recovered/Not Resolved]

NARRATIVE: CASE EVENT DATE: 20241231
